FAERS Safety Report 5650439-1 (Version None)
Quarter: 2008Q1

REPORT INFORMATION
  Report Type: 
  Country: None (occurrence: None)
  Receive Date: 20080303
  Receipt Date: 20080227
  Transmission Date: 20080703
  Serious: Yes (Hospitalization)
  Sender: FDA-Public Use
  Company Number: 2007SP022512

PATIENT
  Age: 70 Year
  Sex: Male

DRUGS (2)
  1. PEG-INTRON [Suspect]
     Indication: HEPATITIS C
     Dosage: 100 MG QW SC
     Route: 058
     Dates: start: 20070126, end: 20071012
  2. REBETOL [Suspect]
     Indication: HEPATITIS C
     Dosage: 600 MG QD PO
     Route: 048
     Dates: start: 20070126, end: 20071012

REACTIONS (1)
  - GASTRIC CANCER [None]
